FAERS Safety Report 8595059-4 (Version None)
Quarter: 2012Q3

REPORT INFORMATION
  Report Type: 
  Country: None (occurrence: None)
  Receive Date: 20120815
  Receipt Date: 20120808
  Transmission Date: 20120928
  Serious: Yes (Other)
  Sender: FDA-Public Use
  Company Number: JP-PFIZER INC-2012193741

PATIENT

DRUGS (2)
  1. LYRICA [Suspect]
     Indication: POST HERPETIC NEURALGIA
     Dosage: 75 MG DAILY
     Route: 048
     Dates: start: 20120701
  2. ANGIOTENSIN II ANTAGONISTS [Interacting]
     Indication: HYPERTENSION
     Dosage: UNK

REACTIONS (3)
  - DRUG INTERACTION [None]
  - BLOOD PRESSURE DECREASED [None]
  - SHOCK [None]
